FAERS Safety Report 6818250-3 (Version None)
Quarter: 2010Q3

REPORT INFORMATION
  Report Type: 
  Country: None (occurrence: None)
  Receive Date: 20100706
  Receipt Date: 20070509
  Transmission Date: 20110219
  Serious: No
  Sender: FDA-Public Use
  Company Number: US-PFIZER INC-2007038352

PATIENT
  Sex: Male

DRUGS (1)
  1. ZITHROMAX (SINGLE DOSE) [Suspect]
     Indication: CHLAMYDIAL INFECTION
     Dates: start: 20070502

REACTIONS (2)
  - CHROMATURIA [None]
  - DYSURIA [None]
